FAERS Safety Report 21579333 (Version 1)
Quarter: 2022Q4

REPORT INFORMATION
  Report Type: Spontaneous
  Country: US (occurrence: None)
  Receive Date: 20221110
  Receipt Date: 20221110
  Transmission Date: 20230113
  Serious: No
  Sender: FDA-Public Use
  Company Number: None

PATIENT
  Sex: 0

DRUGS (1)
  1. SOLIFENACIN [Suspect]
     Active Substance: SOLIFENACIN

REACTIONS (5)
  - Treatment failure [None]
  - Constipation [None]
  - Vision blurred [None]
  - Dry mouth [None]
  - Abdominal discomfort [None]
